FAERS Safety Report 5537428-2 (Version None)
Quarter: 2007Q4

REPORT INFORMATION
  Report Type: 
  Country: None (occurrence: None)
  Receive Date: 20071207
  Receipt Date: 20071126
  Transmission Date: 20080405
  Serious: Yes (Other)
  Sender: FDA-Public Use
  Company Number: BR-ROCHE-533924

PATIENT
  Age: 24 Year
  Sex: Male
  Weight: 70 kg

DRUGS (1)
  1. ROACUTAN [Suspect]
     Indication: ACNE
     Dosage: STRENGTH REPORTED AS 10+20 MG, THERAPY STOP DATE: END OCT-2007/BEGINNING NOV-2007.
     Route: 048
     Dates: start: 20070101, end: 20070101

REACTIONS (3)
  - APPENDICITIS [None]
  - NERVE ROOT LESION [None]
  - URETHRITIS [None]
